FAERS Safety Report 12273960 (Version 1)
Quarter: 2016Q2

REPORT INFORMATION
  Report Type: Spontaneous
  Country: US (occurrence: US)
  Receive Date: 20160415
  Receipt Date: 20160415
  Transmission Date: 20160815
  Serious: Yes (Other)
  Sender: FDA-Public Use
  Company Number: US-009507513-1604USA005908

PATIENT
  Sex: Female

DRUGS (3)
  1. TICE BCG [Suspect]
     Active Substance: BACILLUS CALMETTE-GUERIN SUBSTRAIN TICE LIVE ANTIGEN
     Dosage: 6 WEEK SERIES, MAINTAINANCE DOSE AS FIRST 1/3 DOSE FOR EACH TIME, THEN INCREASED 3/4 TODAY FULL DOSE
     Route: 043
  2. TICE BCG [Suspect]
     Active Substance: BACILLUS CALMETTE-GUERIN SUBSTRAIN TICE LIVE ANTIGEN
     Indication: BLADDER CANCER
     Dosage: 6 WEEKS SERIES
     Route: 043
     Dates: start: 20141125, end: 20150106
  3. TAMOXIFEN [Concomitant]
     Active Substance: TAMOXIFEN

REACTIONS (3)
  - Urethral pain [Recovered/Resolved]
  - Pain in extremity [Recovered/Resolved]
  - Bladder cancer recurrent [Unknown]

NARRATIVE: CASE EVENT DATE: 2015
